FAERS Safety Report 20167699 (Version 4)
Quarter: 2022Q2

REPORT INFORMATION
  Report Type: Report from Study
  Country: KR (occurrence: None)
  Receive Date: 20211209
  Receipt Date: 20220418
  Transmission Date: 20220721
  Serious: Yes (Hospitalization)
  Sender: FDA-Public Use
  Company Number: KR-Eisai Medical Research-EC-2021-104537

PATIENT
  Age: 57 Year
  Sex: Female
  Weight: 55.1 kg

DRUGS (12)
  1. LENVIMA [Suspect]
     Active Substance: LENVATINIB
     Indication: Endometrial adenocarcinoma
     Route: 048
     Dates: start: 20211019, end: 20211109
  2. LENVIMA [Suspect]
     Active Substance: LENVATINIB
     Route: 048
     Dates: start: 20211116, end: 20211121
  3. PEMBROLIZUMAB [Suspect]
     Active Substance: PEMBROLIZUMAB
     Indication: Endometrial adenocarcinoma
     Route: 041
     Dates: start: 20211019, end: 20211019
  4. PEMBROLIZUMAB [Suspect]
     Active Substance: PEMBROLIZUMAB
     Route: 041
     Dates: start: 20211116, end: 20211116
  5. FURIX [Concomitant]
  6. ENAPRIN [Concomitant]
  7. K-CONTIN CONTINUS [Concomitant]
  8. MAGNES [Concomitant]
  9. GUJU SPIRODACTON [Concomitant]
  10. WARFARIN DAEHWA [Concomitant]
  11. ENOXAPARIN SODIUM [Concomitant]
     Active Substance: ENOXAPARIN SODIUM
  12. CARVEDILOL [Concomitant]
     Active Substance: CARVEDILOL

REACTIONS (2)
  - Cardiac failure [Recovered/Resolved with Sequelae]
  - Haematochezia [Recovered/Resolved]

NARRATIVE: CASE EVENT DATE: 20211117
